FAERS Safety Report 17050300 (Version 2)
Quarter: 2019Q4

REPORT INFORMATION
  Report Type: Spontaneous
  Country: JP (occurrence: JP)
  Receive Date: 20191119
  Receipt Date: 20191125
  Transmission Date: 20200122
  Serious: Yes (Hospitalization, Other)
  Sender: FDA-Public Use
  Company Number: JP-PFIZER INC-2019493278

PATIENT
  Age: 74 Year
  Sex: Female

DRUGS (3)
  1. CEFTRIAXONE SODIUM. [Suspect]
     Active Substance: CEFTRIAXONE SODIUM
     Indication: CHOLANGITIS
     Dosage: 2 G, DAILY
     Route: 042
  2. GLUCOSE [Concomitant]
     Active Substance: DEXTROSE
     Dosage: UNK
  3. VANCOMYCIN HYDROCHLORIDE. [Concomitant]
     Active Substance: VANCOMYCIN HYDROCHLORIDE
     Indication: CHOLANGITIS
     Dosage: UNK, (ON DAY 4)

REACTIONS (3)
  - Drug level increased [Recovered/Resolved]
  - Neurotoxicity [Unknown]
  - Chorea [Recovered/Resolved]
